FAERS Safety Report 10616836 (Version 1)
Quarter: 2014Q4

REPORT INFORMATION
  Report Type: Spontaneous
  Country: GB (occurrence: GB)
  Receive Date: 20141201
  Receipt Date: 20141201
  Transmission Date: 20150529
  Serious: Yes (Hospitalization, Disabling)
  Sender: FDA-Public Use
  Company Number: GB-SA-2014SA161058

PATIENT
  Age: 77 Year
  Sex: Female

DRUGS (10)
  1. LIPITOR [Concomitant]
     Active Substance: ATORVASTATIN CALCIUM
     Dosage: AT NIGHT
  2. BIMATOPROST/TIMOLOL MALEATE [Concomitant]
     Dosage: 0.3 MG/ML + 5 MG/ML?EYE DROP
  3. RANITIDINE [Concomitant]
     Active Substance: RANITIDINE\RANITIDINE HYDROCHLORIDE
     Dosage: IN THE MORNING, RECENT ACUTE MEDICATION, DRUG WITHDRAWN
     Dates: start: 20141103
  4. PROCHLORPERAZINE. [Concomitant]
     Active Substance: PROCHLORPERAZINE
  5. BRINZOLAMIDE [Concomitant]
     Active Substance: BRINZOLAMIDE
     Dosage: EYE DROP
  6. SERTRALINE [Suspect]
     Active Substance: SERTRALINE HYDROCHLORIDE
     Dosage: RECENT ACUTE MEDICATION
     Route: 048
     Dates: start: 20141029
  7. PERINDOPRIL [Concomitant]
     Active Substance: PERINDOPRIL
     Dosage: IN MORNING, DRUG WITHDRAWN
  8. PARACETAMOL [Concomitant]
     Active Substance: ACETAMINOPHEN
  9. INDAPAMIDE. [Suspect]
     Active Substance: INDAPAMIDE
     Dosage: EVERY NIGHT
     Route: 048
  10. OMEPRAZOLE. [Suspect]
     Active Substance: OMEPRAZOLE
     Dosage: RECENT ACUTE MEDICATION
     Route: 048

REACTIONS (8)
  - Seizure [Recovered/Resolved]
  - Confusional state [Recovered/Resolved]
  - Hypotonia [Unknown]
  - Muscle rigidity [Recovered/Resolved]
  - Hypokalaemia [Recovered/Resolved]
  - Hyponatraemia [Recovered/Resolved]
  - Somnolence [Unknown]
  - Screaming [Recovered/Resolved]

NARRATIVE: CASE EVENT DATE: 20141029
